FAERS Safety Report 6812869-1 (Version None)
Quarter: 2010Q3

REPORT INFORMATION
  Report Type: 
  Country: None (occurrence: None)
  Receive Date: 20100701
  Receipt Date: 20100628
  Transmission Date: 20110219
  Serious: Yes (Death, Hospitalization, Other)
  Sender: FDA-Public Use
  Company Number: US-CEPHALON-2010001708

PATIENT
  Sex: Male

DRUGS (2)
  1. TREANDA [Suspect]
     Indication: HODGKIN'S DISEASE LYMPHOCYTE PREDOMINANCE TYPE RECURRENT
     Route: 041
     Dates: end: 20100203
  2. RITUXAN [Concomitant]
     Indication: HODGKIN'S DISEASE LYMPHOCYTE PREDOMINANCE TYPE RECURRENT

REACTIONS (3)
  - LUNG INFILTRATION [None]
  - MULTI-ORGAN FAILURE [None]
  - PANCYTOPENIA [None]
